FAERS Safety Report 19071551 (Version 6)
Quarter: 2025Q2

REPORT INFORMATION
  Report Type: Spontaneous
  Country: PT (occurrence: PT)
  Receive Date: 20210330
  Receipt Date: 20250625
  Transmission Date: 20250717
  Serious: Yes (Disabling, Other)
  Sender: AUROBINDO
  Company Number: PT-GLAXOSMITHKLINE-PT2021EME060117

PATIENT
  Age: 42 Year
  Sex: Female

DRUGS (15)
  1. BUPROPION [Suspect]
     Active Substance: BUPROPION
     Indication: Product used for unknown indication
     Route: 048
  2. BUPROPION [Suspect]
     Active Substance: BUPROPION
     Indication: Major depression
  3. DIAZEPAM [Suspect]
     Active Substance: DIAZEPAM
     Indication: Major depression
     Dosage: 10 MILLIGRAM, 3 TIMES A DAY
     Route: 065
  4. DIAZEPAM [Suspect]
     Active Substance: DIAZEPAM
     Dosage: 90 MILLIGRAM, ONCE A DAY
  5. FLUOXETINE [Suspect]
     Active Substance: FLUOXETINE HYDROCHLORIDE
     Indication: Antidepressant therapy
     Route: 065
  6. FLUOXETINE [Suspect]
     Active Substance: FLUOXETINE HYDROCHLORIDE
     Indication: Major depression
  7. MIRTAZAPINE [Suspect]
     Active Substance: MIRTAZAPINE
     Indication: Antidepressant therapy
     Route: 048
  8. MIRTAZAPINE [Suspect]
     Active Substance: MIRTAZAPINE
     Indication: Major depression
  9. QUETIAPINE [Suspect]
     Active Substance: QUETIAPINE
     Indication: Antidepressant therapy
     Route: 048
  10. QUETIAPINE [Suspect]
     Active Substance: QUETIAPINE
     Indication: Major depression
  11. VENLAFAXINE [Suspect]
     Active Substance: VENLAFAXINE HYDROCHLORIDE
     Indication: Antidepressant therapy
     Route: 048
  12. VENLAFAXINE [Suspect]
     Active Substance: VENLAFAXINE HYDROCHLORIDE
     Indication: Major depression
  13. BUPROPION HYDROCHLORIDE [Suspect]
     Active Substance: BUPROPION HYDROCHLORIDE
     Indication: Product used for unknown indication
     Route: 048
  14. CLOMIPRAMINE [Concomitant]
     Active Substance: CLOMIPRAMINE
     Indication: Product used for unknown indication
     Dosage: 225 MILLIGRAM, ONCE A DAY
     Route: 065
  15. CLOMIPRAMINE [Concomitant]
     Active Substance: CLOMIPRAMINE
     Indication: Major depression

REACTIONS (7)
  - Suicidal ideation [Unknown]
  - Drug ineffective [Recovered/Resolved]
  - Psychomotor retardation [Unknown]
  - Disturbance in attention [Unknown]
  - Memory impairment [Unknown]
  - Asthenia [Unknown]
  - Clinomania [Unknown]
